FAERS Safety Report 15107847 (Version 1)
Quarter: 2018Q3

REPORT INFORMATION
  Report Type: Spontaneous
  Country: US (occurrence: US)
  Receive Date: 20180704
  Receipt Date: 20180704
  Transmission Date: 20181010
  Serious: Yes (Hospitalization, Other)
  Sender: FDA-Public Use
  Company Number: US-ASTRAZENECA-2018SE85037

PATIENT
  Age: 42 Year
  Sex: Female
  Weight: 84.4 kg

DRUGS (11)
  1. FENTANYL. [Suspect]
     Active Substance: FENTANYL
     Route: 065
  2. METOPROLOL. [Suspect]
     Active Substance: METOPROLOL
     Indication: BLOOD PRESSURE ABNORMAL
     Route: 048
     Dates: start: 1998
  3. PRILOSEC [Suspect]
     Active Substance: OMEPRAZOLE MAGNESIUM
     Indication: HIATUS HERNIA
     Route: 048
  4. BYDUREON [Suspect]
     Active Substance: EXENATIDE
     Indication: DIABETES MELLITUS
     Route: 058
     Dates: start: 20180612
  5. VITAMIN D [Concomitant]
     Active Substance: CHOLECALCIFEROL
  6. PRILOSEC [Suspect]
     Active Substance: OMEPRAZOLE MAGNESIUM
     Indication: HIATUS HERNIA
     Route: 048
     Dates: start: 1986
  7. POTASSIUM [Concomitant]
     Active Substance: POTASSIUM
  8. ASPIRIN. [Concomitant]
     Active Substance: ASPIRIN
     Indication: CARDIAC DISORDER
  9. METFORMIN [Concomitant]
     Active Substance: METFORMIN HYDROCHLORIDE
     Route: 065
  10. LISINOPRIL. [Suspect]
     Active Substance: LISINOPRIL
     Indication: BLOOD PRESSURE ABNORMAL
     Route: 048
  11. MAGNESIUM [Concomitant]
     Active Substance: MAGNESIUM

REACTIONS (41)
  - Cardiac arrest [Unknown]
  - Retinal artery embolism [Unknown]
  - Dizziness [Unknown]
  - Exostosis [Unknown]
  - Spinal fracture [Unknown]
  - Back injury [Unknown]
  - Pain [Unknown]
  - Stress [Unknown]
  - Contusion [Unknown]
  - Increased appetite [Unknown]
  - Overdose [Unknown]
  - Victim of abuse [Unknown]
  - Diabetes mellitus [Unknown]
  - Glaucoma [Unknown]
  - Muscle rupture [Unknown]
  - Alopecia [Unknown]
  - Drug hypersensitivity [Unknown]
  - Transient ischaemic attack [Unknown]
  - Weight decreased [Unknown]
  - Anxiety [Unknown]
  - Ocular discomfort [Unknown]
  - Drug ineffective [Unknown]
  - Intentional device misuse [Unknown]
  - Product use in unapproved indication [Recovered/Resolved with Sequelae]
  - Aortic aneurysm [Unknown]
  - Food craving [Unknown]
  - Hypertension [Unknown]
  - Osteoarthritis [Unknown]
  - Rotator cuff syndrome [Unknown]
  - Memory impairment [Unknown]
  - Feeling abnormal [Unknown]
  - Cerebrovascular accident [Unknown]
  - Gait disturbance [Unknown]
  - Eating disorder [Unknown]
  - Blood glucose abnormal [Unknown]
  - Spinal column stenosis [Unknown]
  - Constipation [Unknown]
  - Migraine [Unknown]
  - Muscle spasms [Unknown]
  - Overweight [Unknown]
  - Off label use [Recovered/Resolved with Sequelae]

NARRATIVE: CASE EVENT DATE: 1986
